FAERS Safety Report 5129486-4 (Version None)
Quarter: 2006Q4

REPORT INFORMATION
  Report Type: 
  Country: None (occurrence: None)
  Receive Date: 20061012
  Receipt Date: 20060815
  Transmission Date: 20070319
  Serious: Yes (Death)
  Sender: FDA-Public Use
  Company Number: 2006102188

PATIENT
  Sex: Male

DRUGS (1)
  1. BEXTRA [Suspect]
     Dates: start: 20020701, end: 20030701

REACTIONS (2)
  - ACUTE MYOCARDIAL INFARCTION [None]
  - INJURY [None]
